FAERS Safety Report 7618964-1 (Version None)
Quarter: 2011Q3

REPORT INFORMATION
  Report Type: 
  Country: None (occurrence: None)
  Receive Date: 20110718
  Receipt Date: 20110708
  Transmission Date: 20111222
  Serious: Yes (Other)
  Sender: FDA-Public Use
  Company Number: SE-PFIZER INC-2011101566

PATIENT
  Age: 76 Year
  Sex: Male
  Weight: 76 kg

DRUGS (4)
  1. XALCOM [Suspect]
     Indication: GLAUCOMA
     Dosage: UNK
     Route: 047
     Dates: end: 20101001
  2. XALATAN [Suspect]
     Indication: GLAUCOMA
     Dosage: DAILY IN LEFT EYE
     Route: 047
     Dates: start: 20101001, end: 20101201
  3. AZOPT [Concomitant]
     Dosage: 1 DROP TWICE DAILY IN BOTH EYES
     Route: 047
     Dates: start: 20060101
  4. XALCOM [Suspect]
     Dosage: UNK
     Route: 047
     Dates: start: 20101201

REACTIONS (2)
  - GENERAL PHYSICAL HEALTH DETERIORATION [None]
  - INTRAOCULAR PRESSURE INCREASED [None]
